FAERS Safety Report 9358410 (Version 2)
Quarter: 2013Q3

REPORT INFORMATION
  Report Type: Report from Study
  Country: US (occurrence: US)
  Receive Date: 20130620
  Receipt Date: 20130710
  Transmission Date: 20140515
  Serious: Yes (Hospitalization)
  Sender: FDA-Public Use
  Company Number: US-GLAXOSMITHKLINE-A1027358B

PATIENT
  Age: 65 Year
  Sex: Female
  Weight: 52.7 kg

DRUGS (13)
  1. OFATUMUMAB [Suspect]
     Indication: CHRONIC LYMPHOCYTIC LEUKAEMIA
     Dosage: 2000MG CYCLIC
     Route: 042
     Dates: start: 20130319, end: 20130514
  2. ALEMTUZUMAB [Suspect]
     Indication: CHRONIC LYMPHOCYTIC LEUKAEMIA
     Dates: start: 20130305, end: 20130503
  3. ACYCLOVIR [Concomitant]
     Dosage: 400MG PER DAY
     Route: 048
  4. CALCIUM + MAGNESIUM [Concomitant]
     Route: 048
  5. CHOLECALCIFEROL (VITAMIN D3) [Concomitant]
     Dosage: 1CAP PER DAY
     Route: 048
  6. CIPROFLOXACINE [Concomitant]
     Dosage: 500MG TWICE PER DAY
     Route: 048
  7. FLUCONAZOLE [Concomitant]
     Dosage: 200MG PER DAY
     Route: 048
  8. OMEGA 3 POLYUNSATURATES [Concomitant]
     Dosage: 1CAP PER DAY
     Route: 048
  9. VITAMIN B COMPLEX [Concomitant]
     Dosage: 1CAP PER DAY
     Route: 048
  10. OMEPRAZOLE [Concomitant]
     Dosage: 20MG PER DAY
     Route: 048
  11. PENTAMIDINE [Concomitant]
  12. RISEDRONATE [Concomitant]
     Dosage: 150MG MONTHLY
     Route: 048
  13. ZOLPIDEM [Concomitant]
     Dosage: 5MG AT NIGHT
     Route: 048

REACTIONS (1)
  - Pancytopenia [Unknown]
